FAERS Safety Report 4471021-8 (Version None)
Quarter: 2004Q4

REPORT INFORMATION
  Report Type: 
  Country: None (occurrence: None)
  Receive Date: 20041011
  Receipt Date: 20040922
  Transmission Date: 20050328
  Serious: Yes (Hospitalization)
  Sender: FDA-Public Use
  Company Number: SEPFP-S-20040001

PATIENT
  Age: 61 Year
  Sex: Male

DRUGS (3)
  1. NAVELBINE [Suspect]
     Dosage: 50MG SEE DOSAGE TEXT
     Route: 042
     Dates: start: 20030801
  2. INSULIN [Concomitant]
  3. CARBOPLATIN [Concomitant]

REACTIONS (3)
  - ANOREXIA [None]
  - MICTURITION DISORDER [None]
  - PYREXIA [None]
